FAERS Safety Report 4514911-X (Version None)
Quarter: 2004Q4

REPORT INFORMATION
  Report Type: 
  Country: None (occurrence: None)
  Receive Date: 20041129
  Receipt Date: 20041129
  Transmission Date: 20050328
  Serious: Yes (Life-Threatening)
  Sender: FDA-Public Use
  Company Number: None

PATIENT
  Age: 20 Year
  Sex: Female
  Weight: 120 kg

DRUGS (2)
  1. NUVARING [Suspect]
     Indication: CONTRACEPTION
     Dosage: 0.015MG  QD  VAGINAL
     Route: 067
     Dates: start: 20040201, end: 20041123
  2. NUVARING [Suspect]
     Indication: ENDOMETRIOSIS
     Dosage: 0.015MG  QD  VAGINAL
     Route: 067
     Dates: start: 20040201, end: 20041123

REACTIONS (2)
  - PAIN [None]
  - PULMONARY EMBOLISM [None]
